FAERS Safety Report 10513288 (Version 1)
Quarter: 2014Q4

REPORT INFORMATION
  Report Type: Spontaneous
  Country: GB (occurrence: GB)
  Receive Date: 20141013
  Receipt Date: 20141013
  Transmission Date: 20150528
  Serious: Yes (Other)
  Sender: FDA-Public Use
  Company Number: GB-JNJFOC-20140926486

PATIENT
  Sex: Female

DRUGS (1)
  1. LYRINEL XL [Suspect]
     Active Substance: OXYBUTYNIN
     Indication: PRODUCT USED FOR UNKNOWN INDICATION
     Route: 048

REACTIONS (7)
  - Hypoaesthesia [Unknown]
  - Chest pain [Unknown]
  - Seizure [Unknown]
  - Vision blurred [Unknown]
  - Abdominal pain upper [Unknown]
  - Dizziness [Unknown]
  - Loss of consciousness [Unknown]
